FAERS Safety Report 17307842 (Version 5)
Quarter: 2020Q1

REPORT INFORMATION
  Report Type: Report from Study
  Country: CA (occurrence: CA)
  Receive Date: 20200123
  Receipt Date: 20200319
  Transmission Date: 20200409
  Serious: Yes (Other)
  Sender: FDA-Public Use
  Company Number: CA-NALPROPION PHARMACEUTICALS INC.-2019-008917

PATIENT

DRUGS (17)
  1. SYNTHROID [Concomitant]
     Active Substance: LEVOTHYROXINE SODIUM
     Indication: THYROID DISORDER
     Dosage: 125 MCG, 1 IN 1 D
     Route: 048
  2. CYTOMEL [Concomitant]
     Active Substance: LIOTHYRONINE SODIUM
     Indication: THYROID DISORDER
     Dosage: 5 MCG, 1 IN 1 D
     Route: 048
  3. CONTRAVE [Suspect]
     Active Substance: BUPROPION HYDROCHLORIDE\NALTREXONE HYDROCHLORIDE
     Dosage: STRENGTH: 90 MG/ 8 MG
     Route: 048
     Dates: start: 20191107, end: 20200203
  4. CIPRALEX [Concomitant]
     Active Substance: ESCITALOPRAM OXALATE
     Indication: DEPRESSION
     Dosage: 30 MG, 1 IN 1 D
     Route: 048
     Dates: start: 20200222
  5. AMLODIPINE [Concomitant]
     Active Substance: AMLODIPINE BESYLATE
     Indication: PRODUCT USED FOR UNKNOWN INDICATION
     Dosage: 2.5 MG, 1 IN 1 D
     Route: 048
     Dates: start: 20191224
  6. INSULIN [Concomitant]
     Active Substance: INSULIN NOS
     Dosage: FREQUENCY: BEFORE AND AFTER MEALS; DOSE INCREASED
  7. CONTRAVE [Suspect]
     Active Substance: BUPROPION HYDROCHLORIDE\NALTREXONE HYDROCHLORIDE
     Dosage: STRENGTH: 90 MG/ 8 MG
     Route: 048
     Dates: start: 20191024, end: 20191030
  8. ZOPICLONE [Concomitant]
     Active Substance: ZOPICLONE
     Indication: SLEEP DISORDER
     Dosage: 15 MG, 1 IN 1 D, HS (AT BEDTIME)
     Route: 048
  9. BASAGLAR [Concomitant]
     Active Substance: INSULIN GLARGINE
     Indication: DIABETES MELLITUS
     Dosage: 50 UNITS HS (AT BEDTIME)
     Route: 048
  10. CONTRAVE [Suspect]
     Active Substance: BUPROPION HYDROCHLORIDE\NALTREXONE HYDROCHLORIDE
     Dosage: STRENGTH: 90 MG/ 8 MG
     Route: 048
     Dates: start: 20191031, end: 20191106
  11. RAMIPRIL. [Concomitant]
     Active Substance: RAMIPRIL
     Dosage: 2.5 MG, 1 IN 1 D
     Route: 048
     Dates: start: 20191224
  12. NOVORAPID [Concomitant]
     Active Substance: INSULIN ASPART
     Indication: DIABETES MELLITUS
     Dosage: 10 UNITS AC MEALS
     Route: 048
  13. INSULIN [Concomitant]
     Active Substance: INSULIN NOS
     Indication: DIABETES MELLITUS
     Dosage: FREQUENCY: AFTER MEALS/NIGHT (1 IN 1 D)
  14. RAMIPRIL. [Concomitant]
     Active Substance: RAMIPRIL
     Indication: RENAL DISORDER PROPHYLAXIS
     Dosage: 5 MG, 1 IN 1 D
     Route: 048
  15. CIPRALEX [Concomitant]
     Active Substance: ESCITALOPRAM OXALATE
     Indication: ANXIETY
     Dosage: 10 MG, 1 IN 1 D
     Route: 048
  16. CONTRAVE [Suspect]
     Active Substance: BUPROPION HYDROCHLORIDE\NALTREXONE HYDROCHLORIDE
     Indication: WEIGHT CONTROL
     Dosage: STRENGTH: 90 MG/ 8 MG (1 DOSAGE FORMS, 1 IN 1 D)
     Route: 048
     Dates: start: 20191017, end: 20191023
  17. CONTRAVE [Suspect]
     Active Substance: BUPROPION HYDROCHLORIDE\NALTREXONE HYDROCHLORIDE
     Dosage: STRENGTH: 90 MG/ 8 MG, ONE TABLET IN THE MORNING AND TWO TABLETS IN THE EVENING
     Route: 048
     Dates: start: 20200204

REACTIONS (18)
  - Acute sinusitis [Unknown]
  - Feeling abnormal [Recovered/Resolved]
  - Nausea [Recovered/Resolved]
  - Headache [Recovered/Resolved]
  - Constipation [Recovered/Resolved]
  - Vertigo [Recovered/Resolved]
  - Mood altered [Recovering/Resolving]
  - Drug ineffective [Unknown]
  - Hepatitis [Unknown]
  - Dizziness [Recovered/Resolved]
  - Weight increased [Unknown]
  - Eating disorder [Unknown]
  - Depression [Unknown]
  - Proteinuria [Unknown]
  - Pyrexia [Recovered/Resolved]
  - Malaise [Unknown]
  - Hunger [Unknown]
  - Influenza [Not Recovered/Not Resolved]

NARRATIVE: CASE EVENT DATE: 2019
